FAERS Safety Report 14384902 (Version 12)
Quarter: 2018Q3

REPORT INFORMATION
  Report Type: Spontaneous
  Country: DE (occurrence: DE)
  Receive Date: 20180115
  Receipt Date: 20180802
  Transmission Date: 20181010
  Serious: Yes (Hospitalization)
  Sender: FDA-Public Use
  Company Number: DE-BIOVERATIV-2017BV000169

PATIENT
  Age: 84 Year
  Sex: Male

DRUGS (2)
  1. ALPROLIX [Suspect]
     Active Substance: EFTRENONACOG ALFA
     Route: 042
     Dates: start: 20170705
  2. ALPROLIX [Suspect]
     Active Substance: EFTRENONACOG ALFA
     Indication: FACTOR IX DEFICIENCY
     Dosage: PROPHYLAXIS
     Route: 042
     Dates: start: 201706

REACTIONS (23)
  - Haematoma [Unknown]
  - Bleeding time prolonged [Unknown]
  - Vascular injury [Recovered/Resolved]
  - Pallor [Unknown]
  - Arthropathy [Not Recovered/Not Resolved]
  - Cough [Unknown]
  - Decubitus ulcer [Unknown]
  - Haematuria [Recovered/Resolved]
  - Fungal infection [Unknown]
  - Nasal congestion [Unknown]
  - Oedema [Not Recovered/Not Resolved]
  - Catheter site pain [Recovered/Resolved]
  - Lividity [Unknown]
  - Asthenia [Not Recovered/Not Resolved]
  - Nausea [Unknown]
  - Urine output decreased [Unknown]
  - Joint swelling [Recovered/Resolved]
  - Malaise [Unknown]
  - Skin warm [Not Recovered/Not Resolved]
  - General physical health deterioration [Not Recovered/Not Resolved]
  - Pain in extremity [Recovered/Resolved]
  - Staphylococcal infection [Not Recovered/Not Resolved]
  - Fatigue [Unknown]

NARRATIVE: CASE EVENT DATE: 201707
